FAERS Safety Report 6077947-6 (Version None)
Quarter: 2009Q1

REPORT INFORMATION
  Report Type: 
  Country: None (occurrence: None)
  Receive Date: 20090213
  Receipt Date: 20090206
  Transmission Date: 20090719
  Serious: Yes (Hospitalization)
  Sender: FDA-Public Use
  Company Number: US-KINGPHARMUSA00001-K200801352

PATIENT
  Age: 84 Year
  Sex: Male

DRUGS (10)
  1. ALTACE [Suspect]
     Dosage: 5 MG, QD
     Route: 048
     Dates: end: 20080925
  2. ALDALIX [Suspect]
     Dosage: UNK
     Route: 048
     Dates: end: 20080926
  3. DIFFU K [Suspect]
     Dosage: 1200 MG, QD
     Route: 048
     Dates: end: 20080925
  4. FUROSEMIDE [Suspect]
     Dosage: 40 MG, QD
  5. ALLOPURINOL [Concomitant]
     Dosage: 200 MG, UNK
     Route: 048
  6. AMLODIPINE [Concomitant]
     Dosage: 1 U, UNK
     Route: 048
  7. INEXIUM                            /01479302/ [Concomitant]
     Dosage: 20 MG, UNK
     Route: 048
  8. PLAVIX [Concomitant]
     Dosage: 75 MG, UNK
     Route: 048
  9. XATRAL                             /00975302/ [Concomitant]
     Dosage: 10 MG, UNK
     Route: 048
  10. INEGY [Concomitant]
     Dosage: 1 U, UNK
     Route: 048
     Dates: end: 20080926

REACTIONS (14)
  - ARRHYTHMIA [None]
  - DRUG INTERACTION [None]
  - FALL [None]
  - HYPERKALAEMIA [None]
  - HYPONATRAEMIA [None]
  - HYPOTENSION [None]
  - HYPOVOLAEMIA [None]
  - LOSS OF CONSCIOUSNESS [None]
  - MALAISE [None]
  - PULMONARY EMBOLISM [None]
  - RENAL FAILURE [None]
  - TACHYCARDIA [None]
  - VOMITING [None]
  - WOUND [None]
